FAERS Safety Report 7686498-4 (Version None)
Quarter: 2011Q3

REPORT INFORMATION
  Report Type: 
  Country: None (occurrence: None)
  Receive Date: 20110811
  Receipt Date: 20110802
  Transmission Date: 20111222
  Serious: Yes (Other)
  Sender: FDA-Public Use
  Company Number: 1001389

PATIENT
  Age: 64 Year
  Sex: Female

DRUGS (3)
  1. CHEMOTHERAPEUTICS [Concomitant]
  2. PAMIDRONATE DISODIUM [Suspect]
     Indication: MULTIPLE MYELOMA
     Dosage: 90 MG, EVERY 4 WEEKS, INTRAVENOUS
     Route: 042
  3. THERAPEUTIC RADIOPHARMACEUTICALS [Concomitant]

REACTIONS (1)
  - OSTEONECROSIS [None]
